FAERS Safety Report 4492281-3 (Version None)
Quarter: 2004Q4

REPORT INFORMATION
  Report Type: 
  Country: None (occurrence: None)
  Receive Date: 20041103
  Receipt Date: 20041026
  Transmission Date: 20050328
  Serious: Yes (Life-Threatening, Hospitalization, Disabling)
  Sender: FDA-Public Use
  Company Number: US-MERCK-0410USA03878

PATIENT
  Age: 57 Year
  Sex: Female

DRUGS (2)
  1. VIOXX [Suspect]
     Indication: ARTHRITIS
     Route: 048
     Dates: start: 20011001, end: 20040901
  2. LEXAPRO [Concomitant]
     Route: 065

REACTIONS (3)
  - CARDIAC DISORDER [None]
  - HYPERTENSION [None]
  - PERICARDIAL EFFUSION [None]
